FAERS Safety Report 5745285-4 (Version None)
Quarter: 2008Q2

REPORT INFORMATION
  Report Type: 
  Country: None (occurrence: None)
  Receive Date: 20080521
  Receipt Date: 20080516
  Transmission Date: 20081010
  Serious: Yes (Life-Threatening, Hospitalization)
  Sender: FDA-Public Use
  Company Number: FR-JNJFOC-20080503179

PATIENT
  Sex: Male
  Weight: 71 kg

DRUGS (7)
  1. MICONAZOLE NITRATE [Suspect]
     Route: 002
  2. MICONAZOLE NITRATE [Suspect]
     Indication: ORAL FUNGAL INFECTION
     Route: 002
  3. NAVELBINE [Interacting]
     Indication: DRUG USE FOR UNKNOWN INDICATION
     Route: 042
  4. KALETRA [Interacting]
     Indication: HIV INFECTION
     Route: 048
  5. OXAZEPAM [Concomitant]
     Indication: DRUG USE FOR UNKNOWN INDICATION
     Route: 048
  6. SEROPLEX [Concomitant]
     Indication: DEPRESSION
     Route: 048
  7. TRUVADA [Concomitant]
     Indication: HIV INFECTION
     Route: 048

REACTIONS (4)
  - CYTOLYTIC HEPATITIS [None]
  - DRUG INTERACTION [None]
  - MOUTH ULCERATION [None]
  - PANCYTOPENIA [None]
